FAERS Safety Report 19072771 (Version 9)
Quarter: 2021Q3

REPORT INFORMATION
  Report Type: Report from Study
  Country: US (occurrence: US)
  Receive Date: 20210330
  Receipt Date: 20210824
  Transmission Date: 20211014
  Serious: Yes (Other)
  Sender: FDA-Public Use
  Company Number: US-GLAXOSMITHKLINE-US2021AMR063757

PATIENT
  Sex: Female
  Weight: 68.03 kg

DRUGS (8)
  1. NIRAPARIB [Suspect]
     Active Substance: NIRAPARIB
     Dosage: 200 MG, QD
     Dates: start: 20210311, end: 20210330
  2. NIRAPARIB [Suspect]
     Active Substance: NIRAPARIB
     Dosage: UNK(100MG FOR 2 DAYS AND 200MG FOR 2 DAYS)
     Route: 048
  3. NIRAPARIB [Suspect]
     Active Substance: NIRAPARIB
     Dosage: 100 MG, QD
     Dates: start: 20210413
  4. NIRAPARIB [Suspect]
     Active Substance: NIRAPARIB
     Dosage: 100MG X 2 DAYS, AND 200MG ON DAY 3
     Dates: start: 202105
  5. NIRAPARIB [Suspect]
     Active Substance: NIRAPARIB
     Dosage: UNK (100MG ALTERNATING WITH 200MG)
  6. NIRAPARIB [Suspect]
     Active Substance: NIRAPARIB
     Dosage: UNK (100MG QOD ALT WITH 200MG QOD)
  7. NIRAPARIB [Suspect]
     Active Substance: NIRAPARIB
     Dosage: UNK, Z (100MG FOR 2 DAYS ALTERNATING WITH 200MG FOR 2 DAY)
  8. NIRAPARIB [Suspect]
     Active Substance: NIRAPARIB
     Indication: OVARIAN CANCER
     Dosage: 200 MG, QD
     Dates: start: 20210304

REACTIONS (16)
  - Arthralgia [Recovering/Resolving]
  - Fluid intake reduced [Unknown]
  - Rash [Not Recovered/Not Resolved]
  - Neuropathy peripheral [Recovering/Resolving]
  - Nausea [Recovered/Resolved]
  - Chest discomfort [Recovered/Resolved]
  - Platelet count decreased [Not Recovered/Not Resolved]
  - Hypertension [Not Recovered/Not Resolved]
  - Pain in extremity [Recovering/Resolving]
  - Myalgia [Not Recovered/Not Resolved]
  - Back pain [Not Recovered/Not Resolved]
  - Carbohydrate antigen 125 increased [Not Recovered/Not Resolved]
  - Off label use [Not Recovered/Not Resolved]
  - Cataract operation [Unknown]
  - Constipation [Recovered/Resolved]
  - Pain [Not Recovered/Not Resolved]
